FAERS Safety Report 7353758-6 (Version None)
Quarter: 2011Q1

REPORT INFORMATION
  Report Type: 
  Country: None (occurrence: None)
  Receive Date: 20110315
  Receipt Date: 20110309
  Transmission Date: 20110831
  Serious: Yes (Death, Hospitalization, Other)
  Sender: FDA-Public Use
  Company Number: US-ELI_LILLY_AND_COMPANY-US201103003229

PATIENT
  Sex: Male

DRUGS (1)
  1. FORTEO [Suspect]
     Indication: OSTEOPOROSIS
     Dosage: 20 UG, DAILY (1/D)
     Dates: start: 20101101, end: 20110207

REACTIONS (4)
  - SEPSIS [None]
  - GASTROINTESTINAL HAEMORRHAGE [None]
  - BURSITIS [None]
  - CARDIAC FAILURE CONGESTIVE [None]
